FAERS Safety Report 5532865-4 (Version None)
Quarter: 2007Q4

REPORT INFORMATION
  Report Type: 
  Country: None (occurrence: None)
  Receive Date: 20071129
  Receipt Date: 20071129
  Transmission Date: 20080405
  Serious: Yes (Other)
  Sender: FDA-Public Use
  Company Number: None

PATIENT
  Weight: 20.4119 kg

DRUGS (6)
  1. HAIR CLEAN 1-2-3 [Suspect]
     Indication: LICE INFESTATION
     Dosage: ONCE IN 14 DAYS
     Dates: start: 20020101, end: 20070101
  2. NIX [Concomitant]
  3. RID CLEAR [Concomitant]
  4. LICE FREE [Concomitant]
  5. LINDANE [Concomitant]
  6. PESTICIDE LICE SPRAYS [Concomitant]

REACTIONS (3)
  - CONVULSION [None]
  - DRUG INEFFECTIVE [None]
  - PERSONALITY CHANGE [None]
